FAERS Safety Report 13545418 (Version 1)
Quarter: 2017Q2

REPORT INFORMATION
  Report Type: Spontaneous
  Country: US (occurrence: US)
  Receive Date: 20170515
  Receipt Date: 20170515
  Transmission Date: 20170830
  Serious: Yes (Other)
  Sender: FDA-Public Use
  Company Number: US-UPSHER-SMITH LABORATORIES, INC.-2017USL00002

PATIENT
  Sex: Male

DRUGS (2)
  1. POTASSIUM CHLORIDE. [Suspect]
     Active Substance: POTASSIUM CHLORIDE
  2. BROMOCRIPTINE [Suspect]
     Active Substance: BROMOCRIPTINE

REACTIONS (3)
  - Off label use [Unknown]
  - Hypersensitivity [Unknown]
  - Anaphylactic shock [Unknown]
